FAERS Safety Report 5330488-3 (Version None)
Quarter: 2007Q2

REPORT INFORMATION
  Report Type: 
  Country: None (occurrence: None)
  Receive Date: 20070521
  Receipt Date: 20070508
  Transmission Date: 20071010
  Serious: Yes (Hospitalization)
  Sender: FDA-Public Use
  Company Number: AU-GENENTECH-241654

PATIENT
  Sex: Male

DRUGS (2)
  1. AVASTIN [Suspect]
     Indication: NEOPLASM MALIGNANT
     Dosage: 975 MG, UNK
     Route: 042
  2. CAPECITABINE [Suspect]
     Indication: NEOPLASM MALIGNANT
     Dosage: 4.4 G, QD
     Route: 048
     Dates: start: 20060928

REACTIONS (2)
  - DIARRHOEA [None]
  - PARTIAL SEIZURES [None]
